FAERS Safety Report 8556245-2 (Version None)
Quarter: 2012Q3

REPORT INFORMATION
  Report Type: 
  Country: None (occurrence: None)
  Receive Date: 20120801
  Receipt Date: 20120724
  Transmission Date: 20120928
  Serious: Yes (Hospitalization, Other)
  Sender: FDA-Public Use
  Company Number: JP-VERTEX PHARMACEUTICALS INC.-AE-2012-002736

PATIENT
  Age: 65 Year
  Sex: Female

DRUGS (11)
  1. TELAVIC (TELAPREVIR) [Suspect]
     Route: 048
     Dates: start: 20120217, end: 20120416
  2. REBETOL [Concomitant]
     Route: 048
     Dates: start: 20120222, end: 20120416
  3. REBETOL [Concomitant]
     Route: 048
     Dates: start: 20120529
  4. PEG-INTRON [Concomitant]
     Route: 058
     Dates: start: 20120124, end: 20120710
  5. TELAVIC (TELAPREVIR) [Suspect]
     Indication: HEPATITIS C
     Route: 048
     Dates: start: 20120124, end: 20120127
  6. REBETOL [Concomitant]
     Route: 048
     Dates: start: 20120417
  7. REBETOL [Concomitant]
     Route: 048
     Dates: start: 20120131, end: 20120221
  8. REBETOL [Concomitant]
     Route: 048
     Dates: start: 20120124, end: 20120130
  9. TELAVIC (TELAPREVIR) [Suspect]
     Route: 048
     Dates: start: 20120128, end: 20120213
  10. TELAVIC (TELAPREVIR) [Suspect]
     Route: 048
     Dates: start: 20120214, end: 20120216
  11. REBETOL [Concomitant]
     Route: 048
     Dates: start: 20120515, end: 20120528

REACTIONS (5)
  - RASH [None]
  - ANAEMIA [None]
  - HYPOPHAGIA [None]
  - MALAISE [None]
  - NAUSEA [None]
